FAERS Safety Report 11781739 (Version 2)
Quarter: 2015Q4

REPORT INFORMATION
  Report Type: Spontaneous
  Country: DK (occurrence: DK)
  Receive Date: 20151126
  Receipt Date: 20151231
  Transmission Date: 20160305
  Serious: Yes (Disabling, Other)
  Sender: FDA-Public Use
  Company Number: DK-TEVA-612585ACC

PATIENT
  Age: 65 Year
  Sex: Female

DRUGS (8)
  1. MABTHERA [Suspect]
     Active Substance: RITUXIMAB
     Route: 065
     Dates: start: 20140901
  2. LEVACT [Suspect]
     Active Substance: BENDAMUSTINE HYDROCHLORIDE
     Indication: B-CELL LYMPHOMA
     Route: 042
     Dates: start: 20140707
  3. MABTHERA [Suspect]
     Active Substance: RITUXIMAB
     Indication: B-CELL LYMPHOMA
     Route: 065
     Dates: start: 20140707
  4. LEVACT [Suspect]
     Active Substance: BENDAMUSTINE HYDROCHLORIDE
     Route: 042
     Dates: start: 20141010
  5. MABTHERA [Suspect]
     Active Substance: RITUXIMAB
     Route: 065
     Dates: start: 20141010
  6. LEVACT [Suspect]
     Active Substance: BENDAMUSTINE HYDROCHLORIDE
     Route: 042
     Dates: start: 20140804
  7. LEVACT [Suspect]
     Active Substance: BENDAMUSTINE HYDROCHLORIDE
     Route: 042
     Dates: start: 20140901
  8. MABTHERA [Suspect]
     Active Substance: RITUXIMAB
     Route: 065
     Dates: start: 20140804

REACTIONS (19)
  - Cranial nerve disorder [Unknown]
  - Anaemia [Unknown]
  - Diplopia [Not Recovered/Not Resolved]
  - Plasmapheresis [Recovered/Resolved]
  - Neuralgia [Unknown]
  - Paraesthesia [Unknown]
  - Wheelchair user [Unknown]
  - Fatigue [Unknown]
  - Vision blurred [Not Recovered/Not Resolved]
  - Gait disturbance [Unknown]
  - Mydriasis [Unknown]
  - Hypoaesthesia [Unknown]
  - Ear discomfort [Unknown]
  - Pain in extremity [Unknown]
  - Neuropathy peripheral [Unknown]
  - Motor dysfunction [Unknown]
  - Tremor [Unknown]
  - Alopecia [Unknown]
  - Chills [Unknown]

NARRATIVE: CASE EVENT DATE: 2014
